FAERS Safety Report 14642459 (Version 3)
Quarter: 2018Q2

REPORT INFORMATION
  Report Type: Report from Study
  Country: US (occurrence: US)
  Receive Date: 20180315
  Receipt Date: 20180404
  Transmission Date: 20180711
  Serious: Yes (Other)
  Sender: FDA-Public Use
  Company Number: US-ASTRAZENECA-2018SE22888

PATIENT
  Age: 1068 Month
  Sex: Female
  Weight: 44.5 kg

DRUGS (3)
  1. TAMOXIFEN [Suspect]
     Active Substance: TAMOXIFEN
     Indication: BREAST CANCER
     Route: 048
     Dates: start: 1999
  2. ANASTROZOLE. [Suspect]
     Active Substance: ANASTROZOLE
     Indication: PULMONARY MASS
     Route: 048
     Dates: start: 20180212
  3. TAGRISSO [Suspect]
     Active Substance: OSIMERTINIB
     Indication: NON-SMALL CELL LUNG CANCER
     Route: 048
     Dates: start: 20180215

REACTIONS (20)
  - Rash [Unknown]
  - Feeling abnormal [Unknown]
  - Constipation [Unknown]
  - Glossodynia [Unknown]
  - Non-small cell lung cancer [Unknown]
  - Laceration [Not Recovered/Not Resolved]
  - Off label use [Unknown]
  - Body height decreased [Not Recovered/Not Resolved]
  - Decreased appetite [Unknown]
  - Tremor [Unknown]
  - Product use in unapproved indication [Unknown]
  - Underweight [Not Recovered/Not Resolved]
  - Dry skin [Unknown]
  - Lip erythema [Unknown]
  - Blood oestrogen abnormal [Unknown]
  - Asthenia [Unknown]
  - Lip swelling [Unknown]
  - Pulmonary mass [Unknown]
  - Dry mouth [Unknown]
  - Lip pain [Unknown]

NARRATIVE: CASE EVENT DATE: 201803
